FAERS Safety Report 5485534-3 (Version None)
Quarter: 2007Q4

REPORT INFORMATION
  Report Type: 
  Country: None (occurrence: None)
  Receive Date: 20071011
  Receipt Date: 20071011
  Transmission Date: 20080405
  Serious: Yes (Death, Hospitalization)
  Sender: FDA-Public Use
  Company Number: None

PATIENT
  Sex: Male
  Weight: 71.6683 kg

DRUGS (18)
  1. CAPHOSOL/CYTOGEN CORPORATION [Suspect]
     Dosage: 15ML'S FOUR TO TEN TIMES DAILY PO
     Route: 048
     Dates: start: 20070821, end: 20070824
  2. CAPHOSOL/CYTOGEN CORPORATION [Suspect]
     Dosage: 15ML'S FOUR TO TEN TIMES DAILY PO
     Route: 048
     Dates: start: 20070828, end: 20070901
  3. CARBOPLATIN [Concomitant]
  4. VEPESID [Concomitant]
  5. RADIATION [Concomitant]
  6. VYTORIN [Concomitant]
  7. PLAVIX [Concomitant]
  8. AUGMENTIN '125' [Concomitant]
  9. PREDNISONE [Concomitant]
  10. ULTRAM ER [Concomitant]
  11. VICODIN [Concomitant]
  12. RESTORIL [Concomitant]
  13. FISH OIL [Concomitant]
  14. MEGACE [Concomitant]
  15. MAGOXIDE [Concomitant]
  16. POTASSIUM CHLORIDE [Concomitant]
  17. DURAGESIC-100 [Concomitant]
  18. LORTAB [Concomitant]

REACTIONS (1)
  - DISEASE PROGRESSION [None]
